FAERS Safety Report 5065256-3 (Version None)
Quarter: 2006Q3

REPORT INFORMATION
  Report Type: 
  Country: None (occurrence: None)
  Receive Date: 20060707
  Receipt Date: 20050511
  Transmission Date: 20061208
  Serious: Yes (Hospitalization)
  Sender: FDA-Public Use
  Company Number: SUS1-2005-00319

PATIENT
  Age: 36 Year
  Sex: Female

DRUGS (2)
  1. PENTASA [Suspect]
     Indication: CROHN'S DISEASE
     Dosage: SEE IMAGE
     Dates: start: 19960101, end: 19990501
  2. PENTASA [Suspect]
     Indication: CROHN'S DISEASE
     Dosage: SEE IMAGE
     Dates: start: 20010101, end: 20041001

REACTIONS (2)
  - APLASIA [None]
  - PANCYTOPENIA [None]
